FAERS Safety Report 5139636-1 (Version None)
Quarter: 2006Q4

REPORT INFORMATION
  Report Type: 
  Country: None (occurrence: None)
  Receive Date: 20061024
  Receipt Date: 20061011
  Transmission Date: 20070319
  Serious: Yes (Death, Hospitalization)
  Sender: FDA-Public Use
  Company Number: 2006116417

PATIENT
  Age: 65 Year
  Sex: Female

DRUGS (4)
  1. LYRICA [Suspect]
     Indication: NEURALGIA
     Dosage: 225 MG (75 MG, 3 IN 1 D) ORAL
     Route: 048
     Dates: end: 20060915
  2. MST          (MORPHINE SULFATE) [Concomitant]
  3. MORPHINE SULFATE [Concomitant]
  4. ACETAMINOPHEN [Concomitant]

REACTIONS (3)
  - EMBOLISM [None]
  - NAUSEA [None]
  - VOMITING [None]
